FAERS Safety Report 4817696-2 (Version None)
Quarter: 2005Q3

REPORT INFORMATION
  Report Type: 
  Country: None (occurrence: None)
  Receive Date: 20050929
  Receipt Date: 20050803
  Transmission Date: 20060218
  Serious: No
  Sender: FDA-Public Use
  Company Number: 05P-163-0307369-00

PATIENT
  Age: 76 Year
  Sex: Female
  Weight: 132 kg

DRUGS (7)
  1. HUMIRA [Suspect]
     Indication: RHEUMATOID ARTHRITIS
     Dosage: 40 MG, 1 IN 2 WK, SUBCUTANEOUS
     Route: 058
     Dates: start: 20050801
  2. LEFLUNOMIDE [Concomitant]
  3. MELOXICAM [Concomitant]
  4. BLOOD PRESSURE PILL [Concomitant]
  5. THYROID MEDICINE [Concomitant]
  6. RABEPRAZOLE SODIUM [Concomitant]
  7. PREDNISONE [Concomitant]

REACTIONS (3)
  - ASTHENIA [None]
  - DYSPNOEA [None]
  - HEART RATE INCREASED [None]
